FAERS Safety Report 26068381 (Version 1)
Quarter: 2025Q4

REPORT INFORMATION
  Report Type: Spontaneous
  Country: CN (occurrence: CN)
  Receive Date: 20251120
  Receipt Date: 20251120
  Transmission Date: 20260117
  Serious: Yes (Other)
  Sender: Onesource Specialty Pharma
  Company Number: CN-STRIDES ARCOLAB LIMITED-2025OS001222

PATIENT
  Age: 68 Year
  Sex: Female

DRUGS (4)
  1. ETOPOSIDE [Suspect]
     Active Substance: ETOPOSIDE
     Indication: Ovarian epithelial cancer stage IV
     Dosage: UNK
     Route: 048
     Dates: start: 202111, end: 202205
  2. ETOPOSIDE [Suspect]
     Active Substance: ETOPOSIDE
     Indication: Ovarian epithelial cancer metastatic
  3. BEVACIZUMAB [Concomitant]
     Active Substance: BEVACIZUMAB
     Indication: Ovarian epithelial cancer stage IV
     Dosage: UNK
     Route: 065
     Dates: start: 202111, end: 202205
  4. BEVACIZUMAB [Concomitant]
     Active Substance: BEVACIZUMAB
     Indication: Ovarian epithelial cancer metastatic

REACTIONS (2)
  - Neoplasm recurrence [None]
  - Off label use [Unknown]

NARRATIVE: CASE EVENT DATE: 20220601
